FAERS Safety Report 5097829-6 (Version None)
Quarter: 2006Q3

REPORT INFORMATION
  Report Type: 
  Country: None (occurrence: None)
  Receive Date: 20060905
  Receipt Date: 20060817
  Transmission Date: 20061208
  Serious: Yes (Hospitalization)
  Sender: FDA-Public Use
  Company Number: F03200600188

PATIENT
  Age: 58 Year
  Sex: Male

DRUGS (12)
  1. OXALIPLATIN - SOLUTION [Suspect]
     Indication: CHRONIC LYMPHOCYTIC LEUKAEMIA TRANSFORMATION
     Dosage: 25 MG/M2 IV, DAY 1-4 INTRAVENOUS NOS
     Route: 042
     Dates: start: 20060406, end: 20060409
  2. RITUXAN - RITUXIMAB SOLUTION [Suspect]
     Indication: CHRONIC LYMPHOCYTIC LEUKAEMIA TRANSFORMATION
     Dosage: 375 MG/M2 IV, DAY 1 INTRAVENOUS NOS
     Route: 042
     Dates: start: 20060406, end: 20060406
  3. CYTARABINE SOLUTION [Suspect]
     Indication: CHRONIC LYMPHOCYTIC LEUKAEMIA TRANSFORMATION
     Dosage: 1 G/M2 IV, DAYS 2-3 INTRAVENOUS
     Route: 042
     Dates: start: 20060407, end: 20060408
  4. FLUDARABINE SOLUTION [Suspect]
     Indication: CHRONIC LYMPHOCYTIC LEUKAEMIA TRANSFORMATION
     Dosage: 30 MG/M2, DAYS 2-3 INTRAVENOUS
     Route: 042
     Dates: start: 20060407, end: 20060408
  5. LEVOFLOXACIN [Concomitant]
  6. SULFAMETHOXAZOLE + TRIMETHOPRIM [Concomitant]
  7. VORICONAZOLE [Concomitant]
  8. VALACYCLOVIR HCL [Concomitant]
  9. HUMULIN 70/30 [Concomitant]
  10. PANTOPRAZOLE SODIUM [Concomitant]
  11. DEXTROPROPOXYPHENE HYDROCHLORIDE [Concomitant]
  12. PROCHLORPERAZINE EDISYLATE [Concomitant]

REACTIONS (1)
  - RETINAL HAEMORRHAGE [None]
